FAERS Safety Report 18257266 (Version 2)
Quarter: 2020Q4

REPORT INFORMATION
  Report Type: Spontaneous
  Country: US (occurrence: US)
  Receive Date: 20200911
  Receipt Date: 20201009
  Transmission Date: 20210113
  Serious: Yes (Other)
  Sender: FDA-Public Use
  Company Number: US-BAYER-2020-193913

PATIENT
  Age: 30 Year
  Sex: Female
  Weight: 220 kg

DRUGS (1)
  1. MIRENA [Suspect]
     Active Substance: LEVONORGESTREL
     Indication: CONTRACEPTION
     Dosage: 20 ?G PER DAY, CONTINUOUSLY
     Route: 015
     Dates: start: 20200904, end: 20200904

REACTIONS (2)
  - Complication of device insertion [None]
  - Uterine perforation [None]

NARRATIVE: CASE EVENT DATE: 20200904
